FAERS Safety Report 9254781 (Version 1)
Quarter: 2013Q2

REPORT INFORMATION
  Report Type: Spontaneous
  Country: HK (occurrence: HK)
  Receive Date: 20130425
  Receipt Date: 20130425
  Transmission Date: 20140414
  Serious: Yes (Death)
  Sender: FDA-Public Use
  Company Number: HK-SANOFI-AVENTIS-2013SA040150

PATIENT
  Age: 84 Year
  Sex: Male

DRUGS (1)
  1. RIFAMPICIN [Suspect]
     Indication: BACTERIAL INFECTION
     Route: 065
     Dates: start: 20130411, end: 20130412

REACTIONS (5)
  - Respiratory failure [Fatal]
  - Hypotension [Fatal]
  - Haemoglobin decreased [Recovered/Resolved]
  - White blood cell count increased [Not Recovered/Not Resolved]
  - Thrombocytopenia [Recovered/Resolved]
